FAERS Safety Report 17656122 (Version 1)
Quarter: 2020Q2

REPORT INFORMATION
  Report Type: Spontaneous
  Country: US (occurrence: US)
  Receive Date: 20200410
  Receipt Date: 20200410
  Transmission Date: 20200713
  Serious: Yes (Other)
  Sender: FDA-Public Use
  Company Number: US-BAUSCH-BL-2020-009875

PATIENT
  Sex: Female

DRUGS (1)
  1. APRISO [Suspect]
     Active Substance: MESALAMINE
     Indication: PRODUCT USED FOR UNKNOWN INDICATION
     Dosage: VIA PEG TUBE
     Route: 050

REACTIONS (3)
  - Wrong technique in product usage process [Unknown]
  - Gastrostomy [Unknown]
  - Incorrect route of product administration [Unknown]
